APPROVED DRUG PRODUCT: LETROZOLE
Active Ingredient: LETROZOLE
Strength: 2.5MG
Dosage Form/Route: TABLET;ORAL
Application: A078190 | Product #001
Applicant: PHARMOBEDIENT CONSULTING LLC
Approved: Dec 24, 2008 | RLD: No | RS: No | Type: DISCN